FAERS Safety Report 10098263 (Version 1)
Quarter: 2014Q2

REPORT INFORMATION
  Report Type: Spontaneous
  Country: US (occurrence: US)
  Receive Date: 20140423
  Receipt Date: 20140423
  Transmission Date: 20141212
  Serious: Yes (Death, Other)
  Sender: FDA-Public Use
  Company Number: US-BRISTOL-MYERS SQUIBB COMPANY-20556775

PATIENT
  Sex: Male

DRUGS (1)
  1. YERVOY [Suspect]
     Dosage: LAST DOSE ON 11-FEB-2014

REACTIONS (2)
  - Failure to thrive [Fatal]
  - Intestinal perforation [Recovered/Resolved]
